FAERS Safety Report 8513170-0 (Version None)
Quarter: 2012Q3

REPORT INFORMATION
  Report Type: 
  Country: None (occurrence: None)
  Receive Date: 20120716
  Receipt Date: 20120712
  Transmission Date: 20120928
  Serious: Yes (Death, Hospitalization, Other)
  Sender: FDA-Public Use
  Company Number: US-PFIZER INC-2011073112

PATIENT
  Sex: Male

DRUGS (2)
  1. SUTENT [Suspect]
     Indication: RENAL CANCER
     Dosage: 12.5 MG, 2X/DAY
     Route: 048
     Dates: start: 20110429, end: 20110703
  2. SUTENT [Suspect]
     Indication: METASTATIC RENAL CELL CARCINOMA
     Dosage: 12.5 MG, 3X/DAY, X 28 DAYS EVERY 42 DAYS
     Route: 048
     Dates: start: 20110311

REACTIONS (22)
  - FATIGUE [None]
  - SLOW SPEECH [None]
  - PRURITUS [None]
  - HYPERSOMNIA [None]
  - BLOOD PRESSURE INCREASED [None]
  - JAUNDICE [None]
  - NAUSEA [None]
  - DYSGEUSIA [None]
  - DIARRHOEA [None]
  - BRADYPHRENIA [None]
  - GAIT DISTURBANCE [None]
  - DYSPNOEA [None]
  - DEATH [None]
  - FRUSTRATION [None]
  - TREMOR [None]
  - TRANSIENT ISCHAEMIC ATTACK [None]
  - STOMATITIS [None]
  - ULCER [None]
  - DRY MOUTH [None]
  - CONTUSION [None]
  - WHITE BLOOD CELL COUNT DECREASED [None]
  - FAECES DISCOLOURED [None]
